FAERS Safety Report 9841188 (Version 1)
Quarter: 2014Q1

REPORT INFORMATION
  Report Type: Spontaneous
  Country: US (occurrence: US)
  Receive Date: 20140124
  Receipt Date: 20140124
  Transmission Date: 20141002
  Serious: Yes (Hospitalization, Other)
  Sender: FDA-Public Use
  Company Number: US-PFIZER INC-2014016801

PATIENT
  Sex: Female

DRUGS (2)
  1. DILANTIN [Suspect]
     Dosage: UNK
  2. LYRICA [Suspect]
     Dosage: UNK

REACTIONS (5)
  - Cerebrovascular accident [Unknown]
  - Neoplasm malignant [Unknown]
  - Fall [Unknown]
  - Upper limb fracture [Unknown]
  - Foot fracture [Unknown]
